FAERS Safety Report 4553652-X (Version None)
Quarter: 2004Q4

REPORT INFORMATION
  Report Type: 
  Country: None (occurrence: None)
  Receive Date: 20041227
  Receipt Date: 20040213
  Transmission Date: 20050328
  Serious: Yes (Other)
  Sender: FDA-Public Use
  Company Number: US-JNJFOC-20040203414

PATIENT
  Sex: Male

DRUGS (1)
  1. REOPRO [Suspect]
     Indication: CORONARY ANGIOPLASTY
     Dosage: INTRAVENOUS
     Route: 042
     Dates: end: 20040213

REACTIONS (1)
  - CATHETER SITE HAEMORRHAGE [None]
